FAERS Safety Report 20635260 (Version 1)
Quarter: 2022Q1

REPORT INFORMATION
  Report Type: Spontaneous
  Country: IL (occurrence: IL)
  Receive Date: 20220325
  Receipt Date: 20220325
  Transmission Date: 20220423
  Serious: Yes (Hospitalization, Other)
  Sender: FDA-Public Use
  Company Number: IL-CELLTRION INC.-2022IL003340

PATIENT

DRUGS (4)
  1. TRUXIMA [Suspect]
     Active Substance: RITUXIMAB-ABBS
     Indication: Marginal zone lymphoma
     Dosage: FIRST CYCLE OF TRUXIMA WAS ADMINISTERED IN A SLOW IV RATE- 200CC/H FOR 30 MINUTES, THEN INCREASED TO
     Route: 042
  2. TRUXIMA [Suspect]
     Active Substance: RITUXIMAB-ABBS
     Dosage: 700 MG (2ND TREATMENT CYCLE, GIVEN IN AN INCREASED RATE)
     Route: 042
     Dates: start: 20210115
  3. CYCLOPHOSPHAMIDE\PREDNISONE\VINCRISTINE [Suspect]
     Active Substance: CYCLOPHOSPHAMIDE\PREDNISONE\VINCRISTINE
     Indication: Chemotherapy
  4. RITUXIMAB [Suspect]
     Active Substance: RITUXIMAB

REACTIONS (8)
  - Malaise [Unknown]
  - Vomiting [Unknown]
  - Back pain [Unknown]
  - Abdominal pain [Unknown]
  - Hypersensitivity [Unknown]
  - Abdominal pain upper [Unknown]
  - Rash [Unknown]
  - Off label use [Unknown]
